FAERS Safety Report 23371257 (Version 2)
Quarter: 2024Q1

REPORT INFORMATION
  Report Type: Other
  Country: DE (occurrence: DE)
  Receive Date: 20240105
  Receipt Date: 20240105
  Transmission Date: 20240410
  Serious: Yes (Hospitalization)
  Sender: FDA-Public Use
  Company Number: DE-ROCHE-3297406

PATIENT
  Age: 60 Year
  Sex: Male
  Weight: 80 kg

DRUGS (25)
  1. BEVACIZUMAB [Suspect]
     Active Substance: BEVACIZUMAB
     Indication: Product used for unknown indication
     Dosage: 637.5 MILLIGRAM, Q3W
     Route: 042
     Dates: start: 20220622, end: 20230126
  2. BEVACIZUMAB [Suspect]
     Active Substance: BEVACIZUMAB
     Dosage: 637.5 MILLIGRAM, Q3W, (ON 05/JAN/2023 DATE OF MOST RECENT DOSE OF BEVACIZUMAB PRIOR TO AE/SAE  )
     Route: 042
     Dates: start: 20230105
  3. LEUCOVORIN [Suspect]
     Active Substance: LEUCOVORIN\LEUCOVORIN CALCIUM
     Indication: Neoplasm malignant
     Dosage: UNK, Q2W
     Route: 042
     Dates: start: 20230301
  4. LEUCOVORIN [Suspect]
     Active Substance: LEUCOVORIN\LEUCOVORIN CALCIUM
     Dosage: 850 MILLIGRAM (MOST RECENT DOSE)
     Route: 042
     Dates: start: 20230418
  5. LEUCOVORIN [Suspect]
     Active Substance: LEUCOVORIN\LEUCOVORIN CALCIUM
     Dosage: 840 MILLIGRAM, MOST RECENT DOSE
     Route: 042
     Dates: end: 20230418
  6. CAPECITABINE [Suspect]
     Active Substance: CAPECITABINE
     Indication: Product used for unknown indication
     Dosage: BID
     Route: 048
     Dates: start: 20220622
  7. CAPECITABINE [Suspect]
     Active Substance: CAPECITABINE
     Dosage: 1000 MILLIGRAM, BID, ON 05/JAN/2023 DATE OF MOST RECENT DOSE OF CAPECITABINE PRIOR TO AE/SAE
     Route: 048
     Dates: start: 20230105
  8. AFLIBERCEPT [Suspect]
     Active Substance: AFLIBERCEPT
     Indication: Neoplasm malignant
     Dosage: UNK, Q2W
     Route: 042
     Dates: start: 20230301
  9. AFLIBERCEPT [Suspect]
     Active Substance: AFLIBERCEPT
     Dosage: 336 MILLIGRAM (MOST RECENT DOSE )
     Route: 042
     Dates: start: 20230418
  10. AFLIBERCEPT [Suspect]
     Active Substance: AFLIBERCEPT
     Dosage: MOST RECENT DOSE
     Route: 042
     Dates: end: 20230418
  11. IRINOTECAN [Suspect]
     Active Substance: IRINOTECAN
     Indication: Neoplasm malignant
     Dosage: UNK, Q2W
     Route: 042
     Dates: start: 20230301
  12. IRINOTECAN [Suspect]
     Active Substance: IRINOTECAN
     Dosage: 238.5 MILLIGRAM (MOST RECENT DOSE)
     Route: 042
     Dates: start: 20230301
  13. IRINOTECAN [Suspect]
     Active Substance: IRINOTECAN
     Dosage: 238.5 MILLIGRAM, MOST RECENT DOSE
     Route: 042
     Dates: end: 20230418
  14. FLUOROURACIL [Suspect]
     Active Substance: FLUOROURACIL
     Indication: Neoplasm malignant
     Dosage: MOST RECENT DOSE
     Route: 042
     Dates: start: 20230301
  15. FLUOROURACIL [Suspect]
     Active Substance: FLUOROURACIL
     Dosage: 3780 MILLIGRAM
     Route: 042
     Dates: start: 20230418
  16. FLUOROURACIL [Suspect]
     Active Substance: FLUOROURACIL
     Dosage: 3780 MILLIGRAM
     Route: 042
     Dates: end: 20230418
  17. METOCLOPRAMIDE [Concomitant]
     Active Substance: METOCLOPRAMIDE
     Indication: Product used for unknown indication
     Dosage: 20 MILLIGRAM, QD (1-0-110 MG 2 TIMES IN 1 DAY )
     Route: 065
     Dates: start: 20220316
  18. CHOLECALCIFEROL [Concomitant]
     Active Substance: CHOLECALCIFEROL
     Indication: Product used for unknown indication
     Dosage: 1 TIMES IN 1 WEEK20.000 IE  QW
     Route: 065
     Dates: start: 20211223
  19. CHOLECALCIFEROL [Concomitant]
     Active Substance: CHOLECALCIFEROL
     Dosage: UNK, 1 TIMES IN 1 WEEK20.000 IE
     Route: 065
     Dates: start: 20211223
  20. CYANOCOBALAMIN;PYRIDOXINE [Concomitant]
     Dosage: UNK
     Route: 065
     Dates: start: 20211223
  21. SELENIUM [Concomitant]
     Active Substance: SELENIUM
     Indication: Product used for unknown indication
     Dosage: 100 MILLIGRAM, QD
     Route: 065
     Dates: start: 20220316
  22. ONDANSETRON [Concomitant]
     Active Substance: ONDANSETRON
     Indication: Product used for unknown indication
     Dosage: 8 MILLIGRAM, 1(AS NECESSARY)
     Route: 065
  23. ONDANSETRON [Concomitant]
     Active Substance: ONDANSETRON
     Dosage: 8 MILLIGRAM, PRN (AS NECESSARY)
     Route: 065
     Dates: start: 20220316
  24. LOPERAMIDE [Concomitant]
     Active Substance: LOPERAMIDE
     Indication: Product used for unknown indication
     Dosage: 2 MILLIGRAM, 1(AS NECESSARY)
     Route: 065
  25. LOPERAMIDE [Concomitant]
     Active Substance: LOPERAMIDE
     Dosage: 2 MILLIGRAM, PRN (AS NECESSARY)
     Route: 065
     Dates: start: 20220615

REACTIONS (1)
  - Cholecystitis [Recovered/Resolved]

NARRATIVE: CASE EVENT DATE: 20230110
